FAERS Safety Report 19145825 (Version 1)
Quarter: 2021Q2

REPORT INFORMATION
  Report Type: Report from Study
  Country: CA (occurrence: CA)
  Receive Date: 20210416
  Receipt Date: 20210416
  Transmission Date: 20210717
  Serious: Yes (Other)
  Sender: FDA-Public Use
  Company Number: CA-TAKEDA-CA202002893

PATIENT
  Age: 69 Year
  Sex: Female

DRUGS (5)
  1. CUVITRU [Suspect]
     Active Substance: HUMAN IMMUNOGLOBULIN G
     Indication: PRIMARY IMMUNODEFICIENCY SYNDROME
     Dosage: 10 GRAM, 1X/WEEK
     Route: 058
     Dates: start: 20181009
  2. HIZENTRA [Concomitant]
     Active Substance: HUMAN IMMUNOGLOBULIN G
     Indication: PRODUCT USED FOR UNKNOWN INDICATION
     Route: 065
  3. HUMAN NORMAL IMMUNOGLOBULIN [Concomitant]
     Active Substance: HUMAN IMMUNOGLOBULIN G
     Indication: PRODUCT USED FOR UNKNOWN INDICATION
  4. NAPROXEN [NAPROXEN SODIUM] [Concomitant]
     Active Substance: NAPROXEN SODIUM
     Indication: ARTHRITIS
  5. NAPROXEN [NAPROXEN SODIUM] [Concomitant]
     Active Substance: NAPROXEN SODIUM
     Indication: ARTHRALGIA

REACTIONS (5)
  - Arthralgia [Not Recovered/Not Resolved]
  - Insomnia [Recovered/Resolved with Sequelae]
  - Arthritis [Not Recovered/Not Resolved]
  - Discomfort [Recovered/Resolved with Sequelae]
  - Knee arthroplasty [Recovered/Resolved with Sequelae]

NARRATIVE: CASE EVENT DATE: 20210315
